FAERS Safety Report 5671884-4 (Version None)
Quarter: 2008Q1

REPORT INFORMATION
  Report Type: 
  Country: None (occurrence: None)
  Receive Date: 20080317
  Receipt Date: 20080317
  Transmission Date: 20080703
  Serious: Yes (Other)
  Sender: FDA-Public Use
  Company Number: None

PATIENT
  Sex: Male

DRUGS (1)
  1. ZOLADEX [Suspect]
     Dosage: INJECT 10.8MG EVERY 3 MONTHS SQ
     Route: 058

REACTIONS (1)
  - THROMBOSIS [None]
